FAERS Safety Report 4372204-8 (Version None)
Quarter: 2004Q2

REPORT INFORMATION
  Report Type: 
  Country: None (occurrence: None)
  Receive Date: 20040607
  Receipt Date: 20040526
  Transmission Date: 20050107
  Serious: Yes (Other)
  Sender: FDA-Public Use
  Company Number: GB-GLAXOSMITHKLINE-B0334677A

PATIENT
  Sex: Female

DRUGS (1)
  1. BECONASE [Suspect]

REACTIONS (1)
  - DIABETES MELLITUS [None]
